FAERS Safety Report 23140717 (Version 1)
Quarter: 2023Q4

REPORT INFORMATION
  Report Type: Spontaneous
  Country: US (occurrence: US)
  Receive Date: 20231103
  Receipt Date: 20231103
  Transmission Date: 20240110
  Serious: Yes (Other)
  Sender: FDA-Public Use
  Company Number: US-STRIDES ARCOLAB LIMITED-2023SP016272

PATIENT
  Age: 74 Year
  Sex: Female

DRUGS (4)
  1. AMANTADINE [Suspect]
     Active Substance: AMANTADINE
     Indication: Parkinson^s disease
     Dosage: 100 MILLIGRAM, BID
     Route: 065
  2. AMANTADINE [Suspect]
     Active Substance: AMANTADINE
     Dosage: 100 MILLIGRAM, QD (DOSE REDUCED, 100 MG TWICE DAILY TO ONCE DAILY))
     Route: 065
  3. AMANTADINE [Suspect]
     Active Substance: AMANTADINE
     Dosage: 100 MILLIGRAM, BID
     Route: 065
  4. LEVODOPA [Concomitant]
     Active Substance: LEVODOPA
     Indication: Parkinson^s disease
     Dosage: 800 MILLIGRAM PER DAY
     Route: 065

REACTIONS (1)
  - Myoclonus [Recovered/Resolved]
